FAERS Safety Report 19109146 (Version 1)
Quarter: 2021Q2

REPORT INFORMATION
  Report Type: Spontaneous
  Country: US (occurrence: US)
  Receive Date: 20210408
  Receipt Date: 20210408
  Transmission Date: 20210717
  Serious: No
  Sender: FDA-Public Use
  Company Number: US-BAYER-2021-119103

PATIENT

DRUGS (3)
  1. CLARITIN [Suspect]
     Active Substance: LORATADINE
     Indication: DUST ALLERGY
  2. CLARITIN [Suspect]
     Active Substance: LORATADINE
     Indication: ALLERGY TO ANIMAL
  3. CLARITIN [Suspect]
     Active Substance: LORATADINE
     Indication: ALLERGY TO PLANTS

REACTIONS (1)
  - Drug ineffective [Unknown]
